FAERS Safety Report 23143929 (Version 2)
Quarter: 2024Q1

REPORT INFORMATION
  Report Type: Spontaneous
  Country: US (occurrence: US)
  Receive Date: 20231103
  Receipt Date: 20240202
  Transmission Date: 20240410
  Serious: No
  Sender: FDA-Public Use
  Company Number: US-BRISTOL-MYERS SQUIBB COMPANY-2023-157251

PATIENT
  Age: 29 Year
  Sex: Female

DRUGS (1)
  1. ORENCIA [Suspect]
     Active Substance: ABATACEPT
     Indication: Rheumatoid arthritis
     Route: 058
     Dates: start: 202206

REACTIONS (6)
  - Weight increased [Unknown]
  - Anxiety [Unknown]
  - Insomnia [Unknown]
  - Pruritus [Unknown]
  - Dyspnoea [Unknown]
  - Inflammation [Unknown]
